FAERS Safety Report 7648374-2 (Version None)
Quarter: 2011Q3

REPORT INFORMATION
  Report Type: 
  Country: None (occurrence: None)
  Receive Date: 20110801
  Receipt Date: 20110726
  Transmission Date: 20111222
  Serious: Yes (Other)
  Sender: FDA-Public Use
  Company Number: US-ROCHE-603100

PATIENT
  Sex: Male
  Weight: 112 kg

DRUGS (3)
  1. ANTIFUNGAL AGENT NOS [Concomitant]
  2. SORAFENIB [Suspect]
     Dosage: 200 MG, D 1-5, 8-12, 15-19, 22-26
     Route: 048
  3. BEVACIZUMAB [Suspect]
     Indication: RENAL CELL CARCINOMA
     Dosage: 5 MG/KG, DAYS 1+AMP;15
     Route: 042
     Dates: start: 20071221

REACTIONS (3)
  - ABDOMINAL PAIN [None]
  - INFLUENZA LIKE ILLNESS [None]
  - SCROTAL INFECTION [None]
